FAERS Safety Report 8164570-2 (Version None)
Quarter: 2012Q1

REPORT INFORMATION
  Report Type: 
  Country: None (occurrence: None)
  Receive Date: 20120226
  Receipt Date: 20120215
  Transmission Date: 20120608
  Serious: Yes (Other)
  Sender: FDA-Public Use
  Company Number: US-MYLANLABS-2012S1002154

PATIENT
  Sex: Male
  Weight: 2.36 kg

DRUGS (3)
  1. STAVUDINE [Suspect]
     Route: 064
  2. LAMIVUDINE [Suspect]
     Route: 064
  3. NELFINAVIR MESYLATE [Suspect]
     Route: 064

REACTIONS (3)
  - ILEAL ATRESIA [None]
  - MATERNAL EXPOSURE DURING PREGNANCY [None]
  - PREMATURE BABY [None]
